FAERS Safety Report 13689766 (Version 2)
Quarter: 2017Q3

REPORT INFORMATION
  Report Type: Spontaneous
  Country: FR (occurrence: FR)
  Receive Date: 20170626
  Receipt Date: 20170726
  Transmission Date: 20171127
  Serious: Yes (Death, Other)
  Sender: FDA-Public Use
  Company Number: FR-PFIZER INC-2017269530

PATIENT
  Age: 72 Year
  Sex: Male
  Weight: 94 kg

DRUGS (21)
  1. KARDEGIC [Concomitant]
     Active Substance: ASPIRIN LYSINE
     Dosage: 160 MG, 1X/DAY
     Route: 048
     Dates: start: 20160530, end: 20160612
  2. AMIODARONE HYDROCHLORIDE. [Concomitant]
     Active Substance: AMIODARONE HYDROCHLORIDE
     Dosage: 200 MG, DAILY
     Route: 048
     Dates: start: 20160530
  3. EPLERENONE. [Concomitant]
     Active Substance: EPLERENONE
     Dosage: 25 MG, 1X/DAY
     Route: 048
     Dates: start: 20160530
  4. FINASTERIDE ACCORD [Concomitant]
     Active Substance: FINASTERIDE
     Dosage: 5 MG, DAILY
     Route: 048
     Dates: start: 20160530
  5. PREGABALIN 1A PHARMA [Concomitant]
     Active Substance: PREGABALIN
     Dosage: 25 MG, DAILY
     Route: 048
     Dates: start: 20160530, end: 20160608
  6. ROSUVASTATIN CALCIUM. [Concomitant]
     Active Substance: ROSUVASTATIN CALCIUM
     Dosage: 10 MG, DAILY
     Route: 048
     Dates: start: 20160530
  7. PARACETAMOL [Concomitant]
     Active Substance: ACETAMINOPHEN
     Dosage: 500 MG, UNK
     Route: 048
     Dates: start: 20160530
  8. XATRAL [Concomitant]
     Active Substance: ALFUZOSIN
     Dosage: 10 MG, DAILY
     Route: 048
     Dates: start: 20160602
  9. NEFOPAM MYLAN [Concomitant]
     Active Substance: NEFOPAM
     Dosage: 20 MG, DAILY
  10. METHOTREXATE SODIUM. [Suspect]
     Active Substance: METHOTREXATE SODIUM
     Indication: PLASMA CELL LEUKAEMIA
     Dosage: 6400 MG, DAILY
     Route: 042
     Dates: start: 20160606, end: 20160606
  11. NEOFORDEX [Concomitant]
     Active Substance: DEXAMETHASONE ACETATE
     Dosage: 40 MG, DAILY
     Route: 048
     Dates: start: 20160606, end: 20160609
  12. MOVICOL [Concomitant]
     Active Substance: POLYETHYLENE GLYCOL 3350\POTASSIUM CHLORIDE\SODIUM BICARBONATE\SODIUM CHLORIDE
     Dosage: 10 MG, 1X/DAY
     Route: 048
     Dates: start: 20160601
  13. LEVOFLOXACIN. [Concomitant]
     Active Substance: LEVOFLOXACIN
     Dosage: 500 MG, UNK
     Route: 048
     Dates: start: 20160605, end: 20160605
  14. KIDROLASE [Suspect]
     Active Substance: ASPARAGINASE
     Indication: PLASMA CELL LEUKAEMIA
     Dosage: 12600 IU, DAILY
     Route: 042
     Dates: start: 20160607, end: 20160613
  15. AMOXICILLIN. [Concomitant]
     Active Substance: AMOXICILLIN
     Dosage: 1 G, DAILY
     Route: 048
     Dates: start: 20160606
  16. TRAMADOL HYDROCHLORIDE. [Concomitant]
     Active Substance: TRAMADOL HYDROCHLORIDE
     Dosage: 100 MG, 1X/DAY
     Route: 048
     Dates: start: 20160530
  17. ZYLORIC [Concomitant]
     Active Substance: ALLOPURINOL
     Dosage: 100 MG, DAILY
  18. CYTARABINE. [Concomitant]
     Active Substance: CYTARABINE
     Dosage: 40 MG, DAILY
     Dates: start: 20160609
  19. BISOPROLOL FUMARATE. [Concomitant]
     Active Substance: BISOPROLOL FUMARATE
     Dosage: 5 MG, 1X/DAY
     Route: 048
     Dates: start: 20160530
  20. ALPRAZOLAM MYLAN [Concomitant]
     Active Substance: ALPRAZOLAM
     Dosage: 0.25 MG, 1X/DAY
  21. ZAVEDOS [Suspect]
     Active Substance: IDARUBICIN
     Indication: PLASMA CELL LEUKAEMIA
     Dosage: 25 MG, DAILY
     Route: 042
     Dates: start: 20160606, end: 20160606

REACTIONS (6)
  - Mucosal inflammation [Not Recovered/Not Resolved]
  - Thrombocytopenia [Fatal]
  - Bone marrow failure [Fatal]
  - Respiratory distress [Fatal]
  - Pulmonary alveolar haemorrhage [Fatal]
  - Cerebral haemorrhage [Fatal]

NARRATIVE: CASE EVENT DATE: 20160609
